FAERS Safety Report 5871351-9 (Version None)
Quarter: 2008Q3

REPORT INFORMATION
  Report Type: 
  Country: None (occurrence: None)
  Receive Date: 20080902
  Receipt Date: 20080319
  Transmission Date: 20090109
  Serious: Yes (Hospitalization)
  Sender: FDA-Public Use
  Company Number: 2008S1003260

PATIENT
  Age: 64 Year
  Sex: Male

DRUGS (7)
  1. PHOSPHOSODA FLAVOR NOT SPECIFIED (SODIUM PHOSPHATE DIBASIC/SODIUM PHOS [Suspect]
     Indication: COLONOSCOPY
     Dosage: 45 ML;169
     Dates: start: 20080224
  2. PHOSPHOSODA FLAVOR NOT SPECIFIED (SODIUM PHOSPHATE DIBASIC/SODIUM PHOS [Suspect]
     Indication: COLONOSCOPY
     Dosage: 45 ML;169
     Dates: start: 20080225
  3. CIPROFIBRATE (CIPROFIBRATE) [Concomitant]
  4. LEVOTHYROXINE SODIUM [Concomitant]
  5. NICARDIPINE HYDROCHLORIDE [Concomitant]
  6. MICARDIS [Concomitant]
  7. PROPOFOL [Concomitant]

REACTIONS (3)
  - RENAL FAILURE ACUTE [None]
  - RENAL TUBULAR NECROSIS [None]
  - RHABDOMYOLYSIS [None]
